FAERS Safety Report 15841948 (Version 1)
Quarter: 2019Q1

REPORT INFORMATION
  Report Type: Spontaneous
  Country: US (occurrence: US)
  Receive Date: 20190117
  Receipt Date: 20190117
  Transmission Date: 20190417
  Serious: No
  Sender: FDA-Public Use
  Company Number: None

PATIENT
  Age: 45 Year
  Sex: Female
  Weight: 85.5 kg

DRUGS (5)
  1. AIMOVIG [Concomitant]
     Active Substance: ERENUMAB-AOOE
  2. VERAPAMIL [Concomitant]
     Active Substance: VERAPAMIL HYDROCHLORIDE
  3. AIMOVIG [Suspect]
     Active Substance: ERENUMAB-AOOE
     Indication: MIGRAINE
     Dosage: ?          QUANTITY:2 INJECTION(S);OTHER FREQUENCY:1 TIME PER MONTH;OTHER ROUTE:INJECTED INTO FRONT OF THIGHS?
     Dates: start: 20181214, end: 20190117
  4. GABAPENTIN. [Concomitant]
     Active Substance: GABAPENTIN
  5. TRAMADOL. [Suspect]
     Active Substance: TRAMADOL
     Route: 048

REACTIONS (9)
  - Eye pain [None]
  - Vomiting [None]
  - Nausea [None]
  - Abdominal pain upper [None]
  - Gastrooesophageal reflux disease [None]
  - Migraine [None]
  - Diarrhoea [None]
  - Headache [None]
  - Muscle spasms [None]

NARRATIVE: CASE EVENT DATE: 20190117
